FAERS Safety Report 22828300 (Version 2)
Quarter: 2023Q4

REPORT INFORMATION
  Report Type: Spontaneous
  Country: ES (occurrence: ES)
  Receive Date: 20230816
  Receipt Date: 20231002
  Transmission Date: 20240110
  Serious: Yes (Other)
  Sender: FDA-Public Use
  Company Number: ES-SA-SAC20230213000945

PATIENT
  Age: 79 Year
  Sex: Female
  Weight: 65 kg

DRUGS (6)
  1. INSULIN HUMAN [Suspect]
     Active Substance: INSULIN HUMAN
     Indication: Type 2 diabetes mellitus
     Dosage: UNK UNK, UNKNOWN
     Route: 065
  2. INSULIN GLARGINE [Suspect]
     Active Substance: INSULIN GLARGINE
     Indication: Type 2 diabetes mellitus
     Dosage: 16U/C24H
     Route: 058
     Dates: start: 20220401
  3. INSULIN GLARGINE [Suspect]
     Active Substance: INSULIN GLARGINE
     Dosage: 12 INTERNATIONAL UNIT, UNKNOWN
     Route: 058
  4. INSULIN GLARGINE [Suspect]
     Active Substance: INSULIN GLARGINE
     Dosage: 10 INTERNATIONAL UNIT, UNKNOWN
     Route: 058
  5. LINAGLIPTIN [Suspect]
     Active Substance: LINAGLIPTIN
     Indication: Type 2 diabetes mellitus
     Dosage: UNK UNK, UNKNOWN
     Route: 048
  6. ADO [Concomitant]
     Indication: Type 2 diabetes mellitus
     Dosage: UNK

REACTIONS (8)
  - Diabetes mellitus inadequate control [Unknown]
  - Blood glucose increased [Not Recovered/Not Resolved]
  - Scar [Recovering/Resolving]
  - Nasopharyngitis [Unknown]
  - Hypoglycaemia [Recovered/Resolved]
  - Sluggishness [Unknown]
  - Arthritis [Unknown]
  - Fall [Unknown]

NARRATIVE: CASE EVENT DATE: 20230806
